FAERS Safety Report 5046586-8 (Version None)
Quarter: 2006Q2

REPORT INFORMATION
  Report Type: 
  Country: None (occurrence: None)
  Receive Date: 20060630
  Receipt Date: 20060621
  Transmission Date: 20061013
  Serious: Yes (Life-Threatening)
  Sender: FDA-Public Use
  Company Number: MEDI-0004698

PATIENT
  Age: 64 Year
  Sex: Male

DRUGS (1)
  1. ETHYOL [Suspect]
     Dosage: INTRAVENOUS
     Route: 042

REACTIONS (5)
  - CHEILITIS [None]
  - CONJUNCTIVITIS [None]
  - ERYTHEMA MULTIFORME [None]
  - MUCOCUTANEOUS ULCERATION [None]
  - TOXIC EPIDERMAL NECROLYSIS [None]
